FAERS Safety Report 7705893-8 (Version None)
Quarter: 2011Q3

REPORT INFORMATION
  Report Type: 
  Country: None (occurrence: None)
  Receive Date: 20110824
  Receipt Date: 20110810
  Transmission Date: 20111222
  Serious: Yes (Hospitalization)
  Sender: FDA-Public Use
  Company Number: CA-ELI_LILLY_AND_COMPANY-CA201006005717

PATIENT
  Age: 59 Year
  Sex: Female

DRUGS (20)
  1. ADVAIR DISKUS 100/50 [Concomitant]
  2. ATROVENT [Concomitant]
  3. DOCUSATE SODIUM [Concomitant]
  4. ALBUTEROL [Concomitant]
     Dosage: UNK, AS NEEDED
  5. PREDNISONE [Concomitant]
  6. VITAMIN D [Concomitant]
  7. FORTEO [Suspect]
     Indication: OSTEOPOROSIS
     Dosage: 20 UG, DAILY (1/D)
     Route: 058
     Dates: start: 20100505
  8. CELEXA [Concomitant]
  9. GLUCOSAMINE [Concomitant]
  10. HYDROMORPHONE HCL [Concomitant]
     Dosage: 3 MG, 2/D
  11. DILAUDID [Concomitant]
     Dosage: 2 MG, AS NEEDED
  12. ASPIRIN [Concomitant]
     Dosage: 81 MG, UNK
  13. NORVASC [Concomitant]
  14. SENOKOT [Concomitant]
  15. RABEPRAZOLE SODIUM [Concomitant]
  16. MAGNESIUM [Concomitant]
  17. FORTEO [Suspect]
     Dosage: 20 UG, QD
     Route: 058
  18. CALCIUM CARBONATE [Concomitant]
  19. RAMIPRIL [Concomitant]
  20. HYDROMORPHONE HCL [Concomitant]
     Dosage: 6 MG, 2/D

REACTIONS (4)
  - LUNG INFECTION [None]
  - PNEUMONIA [None]
  - WEIGHT DECREASED [None]
  - PAIN IN EXTREMITY [None]
